FAERS Safety Report 23742546 (Version 3)
Quarter: 2024Q2

REPORT INFORMATION
  Report Type: Spontaneous
  Country: US (occurrence: US)
  Receive Date: 20240415
  Receipt Date: 20240529
  Transmission Date: 20240716
  Serious: No
  Sender: FDA-Public Use
  Company Number: US-PFIZER INC-202400074222

PATIENT
  Age: 14 Year
  Sex: Male
  Weight: 90 kg

DRUGS (1)
  1. GENOTROPIN [Suspect]
     Active Substance: SOMATROPIN
     Indication: Growth disorder
     Dosage: ONCE A DAY AT NIGHT

REACTIONS (2)
  - Drug dose omission by device [Unknown]
  - Device issue [Unknown]
